FAERS Safety Report 7411488-6 (Version None)
Quarter: 2011Q2

REPORT INFORMATION
  Report Type: 
  Country: None (occurrence: None)
  Receive Date: 20110413
  Receipt Date: 20110401
  Transmission Date: 20111010
  Serious: Yes (Other)
  Sender: FDA-Public Use
  Company Number: PHHY2011US24091

PATIENT
  Age: 57 Year
  Sex: Female
  Weight: 84 kg

DRUGS (3)
  1. LEVOTHYROXINE [Concomitant]
     Indication: HYPOTHYROIDISM
     Dosage: 50 UG,
     Route: 048
     Dates: start: 20080901
  2. RECLAST [Suspect]
     Indication: OSTEOPOROSIS
     Dosage: 5 MG, YEARLY
     Route: 042
     Dates: start: 20110222
  3. SERTRALINE [Concomitant]
     Indication: DEPRESSION
     Dosage: 100 MG
     Dates: start: 20080901

REACTIONS (4)
  - ABDOMINAL PAIN UPPER [None]
  - INFLAMMATION [None]
  - CHEST PAIN [None]
  - MUSCULOSKELETAL CHEST PAIN [None]
